FAERS Safety Report 8333751-7 (Version None)
Quarter: 2012Q2

REPORT INFORMATION
  Report Type: 
  Country: None (occurrence: None)
  Receive Date: 20120503
  Receipt Date: 20120423
  Transmission Date: 20120825
  Serious: Yes (Other)
  Sender: FDA-Public Use
  Company Number: US-SANOFI-AVENTIS-2012SA028949

PATIENT
  Age: 51 Year
  Sex: Female

DRUGS (2)
  1. PLAVIX [Suspect]
     Dates: start: 20120201
  2. PLAVIX [Suspect]
     Dates: end: 20120201

REACTIONS (2)
  - ARTHROPATHY [None]
  - HAEMORRHAGE [None]
